FAERS Safety Report 5191561-6 (Version None)
Quarter: 2006Q4

REPORT INFORMATION
  Report Type: 
  Country: None (occurrence: None)
  Receive Date: 20061220
  Receipt Date: 20061220
  Transmission Date: 20070319
  Serious: Yes (Hospitalization)
  Sender: FDA-Public Use
  Company Number: None

PATIENT
  Age: 48 Year
  Sex: Female

DRUGS (1)
  1. TRAMADOL HCL [Suspect]

REACTIONS (5)
  - ABDOMINAL PAIN [None]
  - ILEUS [None]
  - NAUSEA [None]
  - PYREXIA [None]
  - VOMITING [None]
